FAERS Safety Report 7202830-X (Version None)
Quarter: 2010Q4

REPORT INFORMATION
  Report Type: 
  Country: None (occurrence: None)
  Receive Date: 20101229
  Receipt Date: 20101215
  Transmission Date: 20110411
  Serious: Yes (Hospitalization)
  Sender: FDA-Public Use
  Company Number: US-ELI_LILLY_AND_COMPANY-US201002002259

PATIENT
  Sex: Female

DRUGS (13)
  1. FORTEO [Suspect]
     Indication: OSTEOPOROSIS
     Dosage: 20 UG, DAILY (1/D)
     Dates: start: 20090901
  2. FORTEO [Suspect]
     Dosage: 20 UG, DAILY (1/D)
  3. EVISTA [Suspect]
     Indication: OSTEOPOROSIS
     Dosage: 60 MG, DAILY (1/D)
  4. TEGRETOL [Concomitant]
  5. ZANAFLEX [Concomitant]
  6. ZOLOFT [Concomitant]
     Dosage: 1 D/F, EACH EVENING
  7. SEROQUEL [Concomitant]
  8. TOPAMAX [Concomitant]
  9. LASIX [Concomitant]
  10. LEVOTHYROXINE [Concomitant]
     Indication: THYROID DISORDER
  11. ALLEGRA [Concomitant]
  12. TRAMADOL HCL [Concomitant]
  13. POTASSIUM [Concomitant]

REACTIONS (18)
  - AMNESIA [None]
  - ANKLE FRACTURE [None]
  - ARTHRALGIA [None]
  - ARTHRITIS [None]
  - BURSITIS [None]
  - CEREBRAL HAEMORRHAGE [None]
  - COORDINATION ABNORMAL [None]
  - DIZZINESS [None]
  - DYSARTHRIA [None]
  - FIBROMYALGIA [None]
  - HIP FRACTURE [None]
  - JAW FRACTURE [None]
  - LOWER LIMB FRACTURE [None]
  - MALAISE [None]
  - PAIN IN JAW [None]
  - RIB FRACTURE [None]
  - ROAD TRAFFIC ACCIDENT [None]
  - TRANSIENT ISCHAEMIC ATTACK [None]
